FAERS Safety Report 14408808 (Version 1)
Quarter: 2018Q1

REPORT INFORMATION
  Report Type: Spontaneous
  Country: DE (occurrence: DE)
  Receive Date: 20180119
  Receipt Date: 20180119
  Transmission Date: 20180509
  Serious: Yes (Other)
  Sender: FDA-Public Use
  Company Number: DE-SUN PHARMACEUTICAL INDUSTRIES LTD-2018R1-160215

PATIENT
  Age: 30 Year
  Sex: Male
  Weight: 93 kg

DRUGS (1)
  1. CIPRO [Suspect]
     Active Substance: CIPROFLOXACIN HYDROCHLORIDE
     Indication: GASTROINTESTINAL INFECTION
     Dosage: 500 MG PRO TAG 5 TAGE
     Route: 048
     Dates: start: 20171016

REACTIONS (23)
  - Crying [Unknown]
  - Sedation [Unknown]
  - Limb discomfort [Unknown]
  - Gait disturbance [Unknown]
  - Tendon discomfort [Recovered/Resolved]
  - Decreased appetite [Recovered/Resolved]
  - Neuropathy peripheral [Unknown]
  - Pain in extremity [Unknown]
  - Tendon pain [Unknown]
  - Fatigue [Unknown]
  - Gastritis [Unknown]
  - Pain [Unknown]
  - Fatigue [Unknown]
  - Myalgia [Unknown]
  - Mental disorder [Unknown]
  - Hypoaesthesia [Unknown]
  - Dry mouth [Unknown]
  - Dry eye [Unknown]
  - Chills [Unknown]
  - Vision blurred [Unknown]
  - Paraesthesia [Unknown]
  - Tendon pain [Unknown]
  - Diarrhoea [Unknown]

NARRATIVE: CASE EVENT DATE: 20171019
